FAERS Safety Report 17746007 (Version 1)
Quarter: 2020Q2

REPORT INFORMATION
  Report Type: Spontaneous
  Country: US (occurrence: US)
  Receive Date: 20200505
  Receipt Date: 20200505
  Transmission Date: 20200714
  Serious: No
  Sender: FDA-Public Use
  Company Number: US-SA-2020SA112963

PATIENT
  Age: 57 Year
  Sex: Female

DRUGS (3)
  1. TAXOTERE [Suspect]
     Active Substance: DOCETAXEL
     Dosage: UNK UNK, Q3W
     Route: 042
     Dates: start: 20200208, end: 20200208
  2. TAXOTERE [Suspect]
     Active Substance: DOCETAXEL
     Indication: OVARIAN CANCER
     Dosage: UNK UNK, Q3W
     Route: 042
     Dates: start: 20200205, end: 20200205
  3. CARBOPLATIN. [Concomitant]
     Active Substance: CARBOPLATIN
     Indication: OVARIAN CANCER
     Dosage: UNK

REACTIONS (9)
  - Alopecia [Not Recovered/Not Resolved]
  - Fluid retention [Not Recovered/Not Resolved]
  - Pruritus [Not Recovered/Not Resolved]
  - Visual impairment [Not Recovered/Not Resolved]
  - Eye pain [Recovered/Resolved]
  - Weight increased [Not Recovered/Not Resolved]
  - Erythema [Not Recovered/Not Resolved]
  - Hypoaesthesia [Not Recovered/Not Resolved]
  - Lacrimation increased [Not Recovered/Not Resolved]
